FAERS Safety Report 5282529-X (Version None)
Quarter: 2007Q1

REPORT INFORMATION
  Report Type: 
  Country: None (occurrence: None)
  Receive Date: 20070326
  Receipt Date: 20070319
  Transmission Date: 20070707
  Serious: Yes (Hospitalization, Other)
  Sender: FDA-Public Use
  Company Number: 2006SP005898

PATIENT
  Age: 42 Year
  Sex: Male
  Weight: 86.637 kg

DRUGS (2)
  1. PEG-INTRON [Suspect]
     Indication: HEPATITIS C
     Dosage: SC
     Route: 058
     Dates: start: 20060811, end: 20070214
  2. RIBASPHERE [Suspect]
     Dosage: PO
     Route: 048
     Dates: start: 20060811, end: 20070214

REACTIONS (19)
  - ANAEMIA [None]
  - BLOOD POTASSIUM INCREASED [None]
  - BLOOD PRESSURE INCREASED [None]
  - CONVULSION [None]
  - COUGH [None]
  - DRUG INEFFECTIVE [None]
  - DYSURIA [None]
  - FLUID RETENTION [None]
  - GASTRIC DISORDER [None]
  - GENERALISED OEDEMA [None]
  - HEPATIC FAILURE [None]
  - MEMORY IMPAIRMENT [None]
  - ORAL INTAKE REDUCED [None]
  - PENILE HAEMORRHAGE [None]
  - PYREXIA [None]
  - RENAL DISORDER [None]
  - URINARY INCONTINENCE [None]
  - URINARY RETENTION [None]
  - WEIGHT INCREASED [None]
